FAERS Safety Report 7569337-1 (Version None)
Quarter: 2011Q2

REPORT INFORMATION
  Report Type: 
  Country: None (occurrence: None)
  Receive Date: 20110623
  Receipt Date: 20110621
  Transmission Date: 20111010
  Serious: Yes (Other)
  Sender: FDA-Public Use
  Company Number: US-PFIZER INC-2011097174

PATIENT
  Sex: Male

DRUGS (1)
  1. THIOTHIXENE HCL [Suspect]
     Dosage: UNK

REACTIONS (5)
  - EXTRAPYRAMIDAL DISORDER [None]
  - DELUSION [None]
  - RESTLESSNESS [None]
  - HALLUCINATION [None]
  - FATIGUE [None]
